FAERS Safety Report 5786653-4 (Version None)
Quarter: 2008Q2

REPORT INFORMATION
  Report Type: 
  Country: None (occurrence: None)
  Receive Date: 20080624
  Receipt Date: 20080612
  Transmission Date: 20081010
  Serious: Yes (Other)
  Sender: FDA-Public Use
  Company Number: US-PFIZER INC-2008051861

PATIENT
  Sex: Female
  Weight: 54.5 kg

DRUGS (4)
  1. CHANTIX [Suspect]
     Indication: SMOKING CESSATION THERAPY
  2. PROZAC [Concomitant]
     Indication: DEPRESSION
  3. TRAZODONE HCL [Concomitant]
  4. GABAPENTIN [Concomitant]
     Indication: NEURALGIA

REACTIONS (3)
  - PSYCHOTIC DISORDER [None]
  - SELF-INJURIOUS IDEATION [None]
  - VIOLENCE-RELATED SYMPTOM [None]
